FAERS Safety Report 6395277-X (Version None)
Quarter: 2009Q4

REPORT INFORMATION
  Report Type: 
  Country: None (occurrence: None)
  Receive Date: 20091009
  Receipt Date: 20091006
  Transmission Date: 20100525
  Serious: Yes (Hospitalization)
  Sender: FDA-Public Use
  Company Number: A0806911A

PATIENT
  Age: 66 Year
  Sex: Female

DRUGS (9)
  1. TYKERB [Suspect]
     Indication: BREAST CANCER
     Dosage: 5TAB PER DAY
     Route: 048
     Dates: start: 20090905, end: 20090923
  2. METFORMIN [Concomitant]
  3. JANUVIA [Concomitant]
  4. EXFORGE [Concomitant]
  5. INDERAL [Concomitant]
  6. PHENYTOIN [Concomitant]
  7. DEXAMETHASONE 0.5MG TAB [Concomitant]
  8. FLUCONAZOLE [Concomitant]
  9. NYSTATIN [Concomitant]

REACTIONS (7)
  - ASTHENIA [None]
  - BLOOD GLUCOSE INCREASED [None]
  - DEHYDRATION [None]
  - DIARRHOEA [None]
  - DYSPNOEA [None]
  - PNEUMONIA [None]
  - RASH GENERALISED [None]
